FAERS Safety Report 4957543-1 (Version None)
Quarter: 2006Q1

REPORT INFORMATION
  Report Type: 
  Country: None (occurrence: None)
  Receive Date: 20060330
  Receipt Date: 20060208
  Transmission Date: 20060701
  Serious: Yes (Other)
  Sender: FDA-Public Use
  Company Number: US-GLAXOSMITHKLINE-A0592854A

PATIENT
  Age: 54 Year
  Sex: Male

DRUGS (21)
  1. FLOVENT [Suspect]
     Indication: ASTHMA
     Dosage: 220MCG FOUR TIMES PER DAY
     Route: 055
  2. COMBIVIR [Concomitant]
  3. INDINIVIR SULFATE [Concomitant]
  4. NEVIRAPINE [Concomitant]
  5. ACYCLOVIR [Concomitant]
  6. NASONEX [Concomitant]
  7. SEREVENT [Concomitant]
  8. MAXAIR [Concomitant]
  9. SINGULAIR [Concomitant]
  10. VERAPAMIL [Concomitant]
  11. CETIRIZINE [Concomitant]
  12. SIMVASTATIN [Concomitant]
  13. IBUPROFEN [Concomitant]
  14. VIAGRA [Concomitant]
  15. PREVIDENT [Concomitant]
  16. CENTRUM [Concomitant]
  17. ACIDOPHILUS [Concomitant]
  18. DOCUSATE [Concomitant]
  19. BEANO [Concomitant]
  20. LACTASE [Concomitant]
  21. CALCIUM CITRATE [Concomitant]

REACTIONS (1)
  - CUSHING'S SYNDROME [None]
